FAERS Safety Report 13180291 (Version 1)
Quarter: 2017Q1

REPORT INFORMATION
  Report Type: Spontaneous
  Country: ES (occurrence: ES)
  Receive Date: 20170202
  Receipt Date: 20170202
  Transmission Date: 20170428
  Serious: Yes (Other)
  Sender: FDA-Public Use
  Company Number: ES-TEVA-735082ISR

PATIENT
  Age: 56 Year
  Sex: Male

DRUGS (2)
  1. LINEZOLID. [Suspect]
     Active Substance: LINEZOLID
     Indication: STREPTOCOCCAL URINARY TRACT INFECTION
     Route: 042
  2. CEFIXIME. [Suspect]
     Active Substance: CEFIXIME
     Indication: URINARY TRACT INFECTION
     Route: 065

REACTIONS (1)
  - Candida endophthalmitis [Recovered/Resolved]
